FAERS Safety Report 19207075 (Version 1)
Quarter: 2021Q2

REPORT INFORMATION
  Report Type: Spontaneous
  Country: US (occurrence: US)
  Receive Date: 20210503
  Receipt Date: 20210503
  Transmission Date: 20210717
  Serious: No
  Sender: FDA-Public Use
  Company Number: US-JNJFOC-20210439849

PATIENT
  Sex: Female

DRUGS (1)
  1. WOMENS ROGAINE UNSCENTED [Suspect]
     Active Substance: MINOXIDIL
     Indication: ALOPECIA
     Dosage: APPLIED IT ONCE A DAY ONE A DAY IN THE EVENING?PRODUCT STOP DATE: 18?APR?2021
     Route: 065
     Dates: start: 20210105

REACTIONS (1)
  - Drug ineffective [Unknown]
